FAERS Safety Report 20002913 (Version 2)
Quarter: 2022Q1

REPORT INFORMATION
  Report Type: Spontaneous
  Country: JP (occurrence: JP)
  Receive Date: 20211028
  Receipt Date: 20220125
  Transmission Date: 20220423
  Serious: Yes (Hospitalization, Other)
  Sender: FDA-Public Use
  Company Number: JP-AMGEN-JPNSP2021163476

PATIENT
  Age: 82 Year
  Sex: Female
  Weight: 37 kg

DRUGS (8)
  1. EVENITY [Suspect]
     Active Substance: ROMOSOZUMAB-AQQG
     Indication: Osteoporosis
     Dosage: 210 MILLIGRAM
     Route: 058
     Dates: start: 20210928, end: 20210928
  2. CELECOXIB [Suspect]
     Active Substance: CELECOXIB
     Indication: Fracture pain
     Dosage: 100 MILLIGRAM, BID, AFTER BREAKFAST AND DINNER
     Route: 065
     Dates: start: 20210928, end: 20211004
  3. ASPIRIN [Concomitant]
     Active Substance: ASPIRIN
     Dosage: 100 QD AFTER BREAKFAST
  4. TENELIGLIPTIN [Concomitant]
     Active Substance: TENELIGLIPTIN
     Dosage: 40 MILLIGRAM, QD AFTER BREAKFAST
  5. OLMESARTAN MEDOXOMIL [Concomitant]
     Active Substance: OLMESARTAN MEDOXOMIL
     Dosage: 10 MILLIGRAM, QD AFTER BREAKFAST
     Route: 048
  6. AZOSEMIDE [Concomitant]
     Active Substance: AZOSEMIDE
     Dosage: 30 MILLIGRAM, QD AFTER BREAKFAST
  7. EZETIMIBE [Concomitant]
     Active Substance: EZETIMIBE
     Dosage: 10 MILLIGRAM, QD AFTER BREAKFAST
  8. ROSUVASTATIN [Concomitant]
     Active Substance: ROSUVASTATIN
     Dosage: 2.5 MILLIGRAM, QD AFTER BREAKFAST

REACTIONS (3)
  - Right ventricular failure [Recovering/Resolving]
  - Pulmonary hypertension [Unknown]
  - Pleural effusion [Unknown]

NARRATIVE: CASE EVENT DATE: 20210101
